FAERS Safety Report 24641591 (Version 1)
Quarter: 2024Q4

REPORT INFORMATION
  Report Type: Spontaneous
  Country: US (occurrence: None)
  Receive Date: 20241118
  Receipt Date: 20241118
  Transmission Date: 20250115
  Serious: No
  Sender: Public
  Company Number: None

PATIENT
  Age: 20 Year
  Sex: Female
  Weight: 81 kg

DRUGS (1)
  1. ACETAMINOPHEN\ASPIRIN\CAFFEINE [Suspect]
     Active Substance: ACETAMINOPHEN\ASPIRIN\CAFFEINE
     Indication: Migraine
     Dosage: OTHER QUANTITY : 1 TABLET(S);?
     Route: 048

REACTIONS (4)
  - Feeling abnormal [None]
  - Eye pruritus [None]
  - Lip swelling [None]
  - Periorbital swelling [None]

NARRATIVE: CASE EVENT DATE: 20240418
